FAERS Safety Report 4423236-2 (Version None)
Quarter: 2004Q3

REPORT INFORMATION
  Report Type: 
  Country: None (occurrence: None)
  Receive Date: 20040803
  Receipt Date: 20040726
  Transmission Date: 20050211
  Serious: Yes (Life-Threatening, Hospitalization)
  Sender: FDA-Public Use
  Company Number: 200410592BCA

PATIENT
  Age: 16 Year
  Sex: Male

DRUGS (3)
  1. GAMUNEX [Suspect]
     Indication: MOUTH ULCERATION
     Dosage: 70 G, TOTAL DAILY, INTRAVENOUS
     Route: 042
     Dates: start: 20040302
  2. GAMUNEX [Suspect]
     Indication: MOUTH ULCERATION
     Dosage: 70 G, TOTAL DAILY, INTRAVENOUS
     Route: 042
     Dates: start: 20040303
  3. GAMUNEX [Suspect]

REACTIONS (1)
  - MENINGITIS ASEPTIC [None]
